FAERS Safety Report 5454120-3 (Version None)
Quarter: 2007Q3

REPORT INFORMATION
  Report Type: 
  Country: None (occurrence: None)
  Receive Date: 20070917
  Receipt Date: 20070709
  Transmission Date: 20080115
  Serious: Yes (Other)
  Sender: FDA-Public Use
  Company Number: US-ASTRAZENECA-2006UW09050

PATIENT
  Age: 380 Month
  Sex: Male

DRUGS (4)
  1. SEROQUEL [Suspect]
     Indication: BIPOLAR DISORDER
     Dosage: 100 MG TO 200 MG
     Route: 048
     Dates: start: 20010401, end: 20020801
  2. RISPERDAL [Suspect]
     Indication: BIPOLAR DISORDER
     Dosage: 1 MG TO 4 MG
     Dates: start: 19951201, end: 19970601
  3. ZYPREXA [Suspect]
     Indication: DEPRESSION
     Dosage: 5 MG TO 20 MG
     Dates: start: 19960101, end: 20010101
  4. ZYPREXA [Suspect]
     Indication: BIPOLAR DISORDER
     Dosage: 5 MG TO 20 MG
     Dates: start: 19960101, end: 20010101

REACTIONS (2)
  - DIABETES MELLITUS [None]
  - PANCREATITIS [None]
